FAERS Safety Report 9016064 (Version 1)
Quarter: 2013Q1

REPORT INFORMATION
  Report Type: Other
  Country: JP (occurrence: JP)
  Receive Date: 20130116
  Receipt Date: 20130116
  Transmission Date: 20140127
  Serious: Yes (Other)
  Sender: FDA-Public Use
  Company Number: JP-ACTELION-A-CH2013-77586

PATIENT
  Age: 13 Year
  Sex: Female

DRUGS (6)
  1. TRACLEER [Suspect]
     Indication: MIXED CONNECTIVE TISSUE DISEASE
     Dosage: UNK
     Route: 048
  2. PREDNISOLONE [Suspect]
  3. LIMAPROST [Concomitant]
  4. MIZORIBINE [Concomitant]
  5. MYCOPHENOLATE MOFETIL [Concomitant]
  6. TACROLIMUS [Concomitant]

REACTIONS (4)
  - Pyrexia [Unknown]
  - Muscular weakness [Unknown]
  - Osteonecrosis [Unknown]
  - Muscle atrophy [Unknown]
